FAERS Safety Report 5002752-9 (Version None)
Quarter: 2006Q2

REPORT INFORMATION
  Report Type: 
  Country: None (occurrence: None)
  Receive Date: 20060516
  Receipt Date: 20060504
  Transmission Date: 20061013
  Serious: Yes (Hospitalization, Other)
  Sender: FDA-Public Use
  Company Number: US-KINGPHARMUSA00001-K200600572

PATIENT
  Age: 67 Year
  Sex: Male

DRUGS (6)
  1. ALTACE [Suspect]
     Indication: ESSENTIAL HYPERTENSION
     Dosage: 5 MG, QD
     Route: 048
     Dates: end: 20051118
  2. LASILIX [Suspect]
     Indication: ESSENTIAL HYPERTENSION
     Dosage: 120 MG, QD
     Route: 048
     Dates: end: 20051118
  3. ALDACTONE [Suspect]
     Indication: ESSENTIAL HYPERTENSION
     Dosage: 75 MG, QD
     Route: 048
     Dates: end: 20051118
  4. TAREG [Suspect]
     Indication: ESSENTIAL HYPERTENSION
     Dosage: 160 MG, QD
     Route: 048
     Dates: end: 20051118
  5. METFORMIN [Concomitant]
     Indication: DIABETES MELLITUS NON-INSULIN-DEPENDENT
  6. REPAGLINIDE [Concomitant]
     Indication: DIABETES MELLITUS NON-INSULIN-DEPENDENT

REACTIONS (4)
  - CARDIAC FAILURE [None]
  - GENERALISED OEDEMA [None]
  - HYPERKALAEMIA [None]
  - RENAL FAILURE ACUTE [None]
